FAERS Safety Report 7755686-0 (Version None)
Quarter: 2011Q3

REPORT INFORMATION
  Report Type: 
  Country: None (occurrence: None)
  Receive Date: 20110915
  Receipt Date: 20110915
  Transmission Date: 20111222
  Serious: No
  Sender: FDA-Public Use
  Company Number: None

PATIENT
  Sex: Female
  Weight: 123.832 kg

DRUGS (1)
  1. CHLORTHALIDONE [Suspect]
     Indication: CELLULITIS
     Dosage: 25 MCG 1X ORAL
     Route: 048
     Dates: start: 20110718, end: 20110720

REACTIONS (2)
  - SWELLING [None]
  - BLISTER [None]
